FAERS Safety Report 9076894 (Version 1)
Quarter: 2013Q1

REPORT INFORMATION
  Report Type: Report from Study
  Country: US (occurrence: US)
  Receive Date: 20130129
  Receipt Date: 20130129
  Transmission Date: 20140127
  Serious: No
  Sender: FDA-Public Use
  Company Number: US-ABBOTT-12P-163-0939477-00

PATIENT
  Age: 46 Year
  Sex: Female

DRUGS (8)
  1. HUMIRA 40 MG/0.8 ML PEN [Suspect]
     Indication: RHEUMATOID ARTHRITIS
     Dates: start: 20120513, end: 20120613
  2. VITAMIN D [Suspect]
     Indication: VITAMIN D DECREASED
     Dosage: FOR 8 WEEKS
     Dates: start: 201206
  3. SULFASALAZINE [Concomitant]
     Indication: RHEUMATOID ARTHRITIS
  4. NEURONTIN [Concomitant]
     Indication: RHEUMATOID ARTHRITIS
  5. LEFLUNOMIDE [Concomitant]
     Indication: RHEUMATOID ARTHRITIS
     Dosage: DAILY
  6. LISINOPRIL [Concomitant]
     Indication: BLOOD PRESSURE
  7. BYSTOLIC [Concomitant]
     Indication: BLOOD PRESSURE
     Dosage: DAILY
  8. HYDROCODONE [Concomitant]
     Indication: PAIN

REACTIONS (13)
  - Vitamin D decreased [Not Recovered/Not Resolved]
  - Injection site erythema [Recovered/Resolved]
  - Injection site swelling [Recovered/Resolved]
  - Injection site pain [Recovered/Resolved]
  - Erythema [Recovered/Resolved]
  - Skin exfoliation [Recovered/Resolved]
  - Erythema [Unknown]
  - Pyrexia [Not Recovered/Not Resolved]
  - Chills [Recovered/Resolved]
  - Chest pain [Not Recovered/Not Resolved]
  - Pneumonia [Not Recovered/Not Resolved]
  - Cough [Not Recovered/Not Resolved]
  - Dyspnoea [Unknown]
